FAERS Safety Report 12170150 (Version 2)
Quarter: 2022Q4

REPORT INFORMATION
  Report Type: Spontaneous
  Country: US (occurrence: US)
  Receive Date: 20160311
  Receipt Date: 20221123
  Transmission Date: 20230113
  Serious: No
  Sender: FDA-Public Use
  Company Number: PHEH2016US005686

PATIENT
  Age: 25 Year
  Sex: Male

DRUGS (3)
  1. AFINITOR [Suspect]
     Active Substance: EVEROLIMUS
     Indication: Glioblastoma
     Dosage: 5 MG, QD
     Route: 048
  2. AFINITOR [Suspect]
     Active Substance: EVEROLIMUS
     Dosage: 2.5 MG, QD (REINTRODUCED AT A REDUCED DOSE)
     Route: 048
  3. VEMURAFENIB [Concomitant]
     Active Substance: VEMURAFENIB
     Indication: Glioblastoma
     Dosage: UNK
     Route: 065

REACTIONS (2)
  - Erythema nodosum [Unknown]
  - Product use in unapproved indication [Unknown]
